FAERS Safety Report 6633393-5 (Version None)
Quarter: 2010Q1

REPORT INFORMATION
  Report Type: 
  Country: None (occurrence: None)
  Receive Date: 20100312
  Receipt Date: 20100303
  Transmission Date: 20100710
  Serious: Yes (Hospitalization, Other)
  Sender: FDA-Public Use
  Company Number: CA-ABBOTT-10P-028-0630253-00

PATIENT
  Sex: Female
  Weight: 70.37 kg

DRUGS (4)
  1. HUMIRA [Suspect]
     Indication: RHEUMATOID ARTHRITIS
     Route: 058
     Dates: end: 20100128
  2. EUROCAL [Concomitant]
     Indication: MINERAL SUPPLEMENTATION
     Route: 048
  3. EURO-D [Concomitant]
     Indication: VITAMIN SUPPLEMENTATION
     Route: 048
  4. NOVOPANTOPRAZOLE [Concomitant]
     Indication: DRUG USE FOR UNKNOWN INDICATION
     Dosage: 1/2 OF 40 MG TABLET TWICE DAILY
     Route: 048

REACTIONS (4)
  - CHEST PAIN [None]
  - NASOPHARYNGITIS [None]
  - PRURITUS [None]
  - PULMONARY SARCOIDOSIS [None]
